FAERS Safety Report 10006066 (Version 3)
Quarter: 2014Q2

REPORT INFORMATION
  Report Type: Spontaneous
  Country: US (occurrence: US)
  Receive Date: 20140313
  Receipt Date: 20140522
  Transmission Date: 20141212
  Serious: Yes (Life-Threatening, Hospitalization)
  Sender: FDA-Public Use
  Company Number: US-JNJFOC-20140306464

PATIENT
  Age: 58 Year
  Sex: Male
  Weight: 105.69 kg

DRUGS (12)
  1. XARELTO [Suspect]
     Indication: HIP ARTHROPLASTY
     Route: 048
     Dates: start: 20130911
  2. XARELTO [Suspect]
     Indication: HIP ARTHROPLASTY
     Route: 048
     Dates: start: 20130910, end: 20130911
  3. XARELTO [Suspect]
     Indication: PULMONARY EMBOLISM
     Route: 048
     Dates: start: 20130911
  4. XARELTO [Suspect]
     Indication: PULMONARY EMBOLISM
     Route: 048
     Dates: start: 20130910, end: 20130911
  5. XARELTO [Suspect]
     Indication: THROMBOSIS PROPHYLAXIS
     Route: 048
     Dates: start: 20130910, end: 20130911
  6. XARELTO [Suspect]
     Indication: THROMBOSIS PROPHYLAXIS
     Route: 048
     Dates: start: 20130911
  7. TRANEXAMIC ACID [Suspect]
     Indication: COAGULOPATHY
     Dosage: 1G TWICE
     Route: 042
     Dates: start: 20130910
  8. MAXZIDE [Concomitant]
     Dosage: 37.5 - 25
     Route: 065
  9. ZETIA [Concomitant]
     Dosage: EVERY PM
     Route: 065
  10. ZOCOR [Concomitant]
     Dosage: EVERY PM
     Route: 065
  11. NORCO [Concomitant]
     Dosage: 10/325 1-2 TABLETS EVERY 4-6 HOURS
     Route: 065
     Dates: start: 20130911
  12. DILAUDID [Concomitant]
     Route: 065
     Dates: start: 20130910

REACTIONS (1)
  - Pulmonary embolism [Recovered/Resolved]
